FAERS Safety Report 7063318-2 (Version None)
Quarter: 2010Q4

REPORT INFORMATION
  Report Type: 
  Country: None (occurrence: None)
  Receive Date: 20101026
  Receipt Date: 20091124
  Transmission Date: 20110411
  Serious: No
  Sender: FDA-Public Use
  Company Number: US-ABBOTT-09P-163-0611307-00

PATIENT
  Sex: Female
  Weight: 85.352 kg

DRUGS (2)
  1. LUPRON DEPOT [Suspect]
     Indication: ENDOMETRIOSIS
     Dates: start: 20091023
  2. SEASONIQUE [Concomitant]
     Indication: CONTRACEPTION
     Dates: end: 20091001

REACTIONS (3)
  - BREAST DISCHARGE [None]
  - HOT FLUSH [None]
  - PREGNANCY TEST POSITIVE [None]
